FAERS Safety Report 21010980 (Version 1)
Quarter: 2022Q2

REPORT INFORMATION
  Report Type: Spontaneous
  Country: US (occurrence: US)
  Receive Date: 20220627
  Receipt Date: 20220627
  Transmission Date: 20220720
  Serious: No
  Sender: FDA-Public Use
  Company Number: US-BAYER-2022A089123

PATIENT
  Sex: Female

DRUGS (1)
  1. MIRENA [Suspect]
     Active Substance: LEVONORGESTREL
     Dosage: 20?G/DAY
     Route: 015
     Dates: start: 2007

REACTIONS (5)
  - Medical device pain [None]
  - Device expulsion [Recovered/Resolved]
  - Menstrual disorder [Recovered/Resolved]
  - Cystitis [None]
  - Device use issue [None]

NARRATIVE: CASE EVENT DATE: 20140101
